FAERS Safety Report 17284917 (Version 1)
Quarter: 2020Q1

REPORT INFORMATION
  Report Type: Spontaneous
  Country: FR (occurrence: FR)
  Receive Date: 20200117
  Receipt Date: 20200117
  Transmission Date: 20200409
  Serious: Yes (Death)
  Sender: FDA-Public Use
  Company Number: FR-009507513-2001FRA004083

PATIENT
  Age: 68 Year
  Sex: Male
  Weight: 68 kg

DRUGS (5)
  1. SERESTA [Suspect]
     Active Substance: OXAZEPAM
     Indication: SUICIDAL IDEATION
     Dosage: UNK
     Route: 048
     Dates: start: 20191121
  2. QUADRASA [Concomitant]
     Indication: COLITIS
     Dosage: UNK
     Route: 054
  3. MIRTAZAPINE. [Suspect]
     Active Substance: MIRTAZAPINE
     Indication: SUICIDAL IDEATION
     Dosage: UNK
     Route: 048
     Dates: start: 20191121
  4. INFLECTRA [Suspect]
     Active Substance: INFLIXIMAB-DYYB
     Indication: COLITIS
     Dosage: 325 MILLIGRAM, QD, POWDER FOR SOLUTION TO DILUTE FOR INFUSION
     Route: 041
     Dates: start: 20191118, end: 20191118
  5. SOLUPRED (PREDNISOLONE SODIUM METAZOATE) [Suspect]
     Active Substance: PREDNISOLONE SODIUM METAZOATE
     Indication: COLITIS
     Dosage: UNK
     Route: 048
     Dates: start: 20191108

REACTIONS (2)
  - Suicidal ideation [Fatal]
  - Completed suicide [Fatal]

NARRATIVE: CASE EVENT DATE: 20191121
